FAERS Safety Report 5060991-5 (Version None)
Quarter: 2006Q2

REPORT INFORMATION
  Report Type: 
  Country: None (occurrence: None)
  Receive Date: 20060630
  Receipt Date: 20060329
  Transmission Date: 20061013
  Serious: No
  Sender: FDA-Public Use
  Company Number: US174344

PATIENT
  Age: 62 Year
  Sex: Male

DRUGS (6)
  1. SENSIPAR [Suspect]
     Indication: HYPERPARATHYROIDISM SECONDARY
     Dosage: 60 MG, 1 IN 1 DAYS
     Dates: start: 20050401
  2. CLOPIDOGREL BISULFATE [Concomitant]
  3. SEVELAMER HCL [Concomitant]
  4. DOXERCALCIFEROL [Concomitant]
  5. TOPROX XL [Concomitant]
  6. CYANOCOBALAMIN [Concomitant]

REACTIONS (1)
  - GOUT [None]
